FAERS Safety Report 6649469-2 (Version None)
Quarter: 2010Q1

REPORT INFORMATION
  Report Type: 
  Country: None (occurrence: None)
  Receive Date: 20100324
  Receipt Date: 20100318
  Transmission Date: 20100710
  Serious: Yes (Hospitalization)
  Sender: FDA-Public Use
  Company Number: US-GILEAD-2010-0027940

PATIENT
  Sex: Male

DRUGS (14)
  1. LETAIRIS [Suspect]
     Indication: PULMONARY ARTERIAL HYPERTENSION
     Route: 048
     Dates: start: 20080620
  2. REVATIO [Concomitant]
  3. WARFARIN SODIUM [Concomitant]
  4. EXFORGE [Concomitant]
  5. SPIRONOLACTONE [Concomitant]
  6. CORICIDIN COLD AND FLU [Concomitant]
  7. IPRATROPIUM [Concomitant]
  8. SYMBICORT [Concomitant]
  9. ADVAIR DISKUS 100/50 [Concomitant]
  10. SPIRIVA [Concomitant]
  11. FLONASE [Concomitant]
  12. CLARITIN [Concomitant]
  13. TYLENOL (CAPLET) [Concomitant]
  14. CALCIUM CITRACT +D [Concomitant]

REACTIONS (1)
  - PNEUMONIA [None]
